FAERS Safety Report 9655584 (Version 2)
Quarter: 2013Q4

REPORT INFORMATION
  Report Type: Report from Study
  Country: TH (occurrence: TH)
  Receive Date: 20131029
  Receipt Date: 20131118
  Transmission Date: 20140711
  Serious: Yes (Other)
  Sender: FDA-Public Use
  Company Number: TH-ROCHE-1296329

PATIENT
  Sex: 0

DRUGS (3)
  1. ALTEPLASE [Suspect]
     Indication: PERIPHERAL ISCHAEMIA
     Dosage: INITIAL BOLUS INJECTION OF HIGH DOSE RT-PA (5-15 MG) THROUGH THE INFUSION CATHETER FOLLOWED BY CONTI
     Route: 013
  2. ALTEPLASE [Suspect]
     Indication: EMBOLISM ARTERIAL
  3. HEPARIN [Suspect]
     Indication: THROMBOSIS PROPHYLAXIS
     Dosage: CONTINUOUS SYSTEMIC HEPARINIZATION AT THE RATE OF 500 UNITS/HOURS
     Route: 065

REACTIONS (1)
  - Extravasation blood [Unknown]
